FAERS Safety Report 8163704-3 (Version None)
Quarter: 2012Q1

REPORT INFORMATION
  Report Type: 
  Country: None (occurrence: None)
  Receive Date: 20120224
  Receipt Date: 20120222
  Transmission Date: 20120608
  Serious: No
  Sender: FDA-Public Use
  Company Number: US-PFIZER INC-2012048270

PATIENT
  Sex: Male

DRUGS (1)
  1. CHANTIX [Suspect]
     Dosage: UNK

REACTIONS (5)
  - DIZZINESS [None]
  - IRRITABILITY [None]
  - GAIT DISTURBANCE [None]
  - ABNORMAL BEHAVIOUR [None]
  - MEMORY IMPAIRMENT [None]
